FAERS Safety Report 8511487-7 (Version None)
Quarter: 2012Q3

REPORT INFORMATION
  Report Type: 
  Country: None (occurrence: None)
  Receive Date: 20120716
  Receipt Date: 20120702
  Transmission Date: 20120928
  Serious: Yes (Hospitalization)
  Sender: FDA-Public Use
  Company Number: US-SANOFI-AVENTIS-2012SA044780

PATIENT
  Age: 67 Year
  Sex: Male
  Weight: 93 kg

DRUGS (18)
  1. ASPIRIN [Suspect]
  2. AVODART [Concomitant]
  3. LISINOPRIL [Concomitant]
  4. SYNTHROID [Concomitant]
  5. AMIODARONE HCL [Concomitant]
     Route: 048
  6. AMBIEN [Suspect]
     Route: 048
  7. ASPIRIN [Suspect]
  8. SYNTHROID [Concomitant]
     Indication: HYPOTHYROIDISM
  9. MULTI-VITAMINS [Concomitant]
  10. PLAVIX [Suspect]
     Route: 048
  11. DIAZEPAM [Concomitant]
  12. VICODIN [Suspect]
     Route: 065
  13. COREG [Concomitant]
  14. NEURONTIN [Concomitant]
  15. CRESTOR [Concomitant]
  16. COREG [Concomitant]
  17. HYDROCHLOROTHIAZIDE [Concomitant]
  18. VITAMIN D [Concomitant]

REACTIONS (7)
  - FALL [None]
  - RIB FRACTURE [None]
  - HAEMATOMA [None]
  - CERVICAL VERTEBRAL FRACTURE [None]
  - SUBARACHNOID HAEMORRHAGE [None]
  - CONTUSION [None]
  - AMNESIA [None]
